FAERS Safety Report 7387334-6 (Version None)
Quarter: 2011Q1

REPORT INFORMATION
  Report Type: 
  Country: None (occurrence: None)
  Receive Date: 20110331
  Receipt Date: 20110324
  Transmission Date: 20110831
  Serious: Yes (Hospitalization, Other)
  Sender: FDA-Public Use
  Company Number: US-ELI_LILLY_AND_COMPANY-US201012003050

PATIENT
  Age: 76 Year
  Sex: Female
  Weight: 90.068 kg

DRUGS (9)
  1. GEMZAR [Suspect]
     Dosage: 700 MG, OTHER
     Route: 065
     Dates: start: 20101202
  2. CELEBREX [Concomitant]
  3. ARIMIDEX [Concomitant]
  4. PRILOSEC [Concomitant]
  5. CRESTOR [Concomitant]
  6. GEMZAR [Suspect]
     Indication: GALLBLADDER CANCER
     Dosage: 1390 MG, UNK
     Route: 042
     Dates: start: 20100617, end: 20101216
  7. ASPIRIN [Concomitant]
  8. LEVOXYL [Concomitant]
  9. ZOLOFT [Concomitant]

REACTIONS (13)
  - LYMPHADENECTOMY [None]
  - LIVER DISORDER [None]
  - THROMBOCYTOPENIA [None]
  - ANAEMIA [None]
  - SEPSIS [None]
  - MALAISE [None]
  - ENCEPHALOPATHY [None]
  - PYREXIA [None]
  - CHILLS [None]
  - CONFUSIONAL STATE [None]
  - HEPATECTOMY [None]
  - ASTHENIA [None]
  - PAIN [None]
